FAERS Safety Report 5026937-0 (Version None)
Quarter: 2006Q2

REPORT INFORMATION
  Report Type: 
  Country: None (occurrence: None)
  Receive Date: 20060609
  Receipt Date: 20060601
  Transmission Date: 20061013
  Serious: Yes (Hospitalization)
  Sender: FDA-Public Use
  Company Number: 20063018

PATIENT
  Age: 23 Year
  Sex: Male

DRUGS (1)
  1. LIORESAL [Suspect]
     Indication: MUSCLE SPASTICITY
     Dosage: 325 MCG, DAILY, INTRATHECAL
     Route: 037

REACTIONS (7)
  - AUTONOMIC NERVOUS SYSTEM IMBALANCE [None]
  - ERYTHEMA [None]
  - HEADACHE [None]
  - HYPERHIDROSIS [None]
  - HYPERTENSION [None]
  - MUSCLE SPASTICITY [None]
  - PRURITUS [None]
